FAERS Safety Report 5742585-9 (Version None)
Quarter: 2008Q2

REPORT INFORMATION
  Report Type: 
  Country: None (occurrence: None)
  Receive Date: 20080519
  Receipt Date: 20080512
  Transmission Date: 20081010
  Serious: Yes (Hospitalization)
  Sender: FDA-Public Use
  Company Number: JP-AVENTIS-200713043JP

PATIENT
  Age: 46 Year
  Sex: Male
  Weight: 42 kg

DRUGS (6)
  1. LANTUS [Suspect]
     Indication: TYPE 1 DIABETES MELLITUS
     Dosage: DOSE: 6 UNITS
     Route: 058
     Dates: start: 20071019
  2. OPTICLIK (INSULIN INJECTION PEN) [Suspect]
     Indication: TYPE 1 DIABETES MELLITUS
     Dates: start: 20071019
  3. NOVOLIN R [Suspect]
     Indication: TYPE 1 DIABETES MELLITUS
     Route: 058
     Dates: start: 20071015
  4. NOVOLIN N [Suspect]
     Indication: TYPE 1 DIABETES MELLITUS
     Dosage: DOSE: 10 UNITS
     Route: 058
     Dates: start: 20071015, end: 20071018
  5. MONEDAX [Concomitant]
     Indication: DIABETES MELLITUS
     Route: 048
     Dates: start: 20071023
  6. PASETOCIN                          /00249601/ [Concomitant]
     Indication: DENTAL CARIES
     Route: 048
     Dates: start: 20071031, end: 20071105

REACTIONS (10)
  - ALANINE AMINOTRANSFERASE INCREASED [None]
  - ASPARTATE AMINOTRANSFERASE INCREASED [None]
  - BLOOD ALKALINE PHOSPHATASE INCREASED [None]
  - BLOOD GLUCOSE INCREASED [None]
  - BLOOD IMMUNOGLOBULIN E INCREASED [None]
  - BLOOD LACTATE DEHYDROGENASE INCREASED [None]
  - GAMMA-GLUTAMYLTRANSFERASE INCREASED [None]
  - HAEMOCHROMATOSIS [None]
  - HEPATIC FUNCTION ABNORMAL [None]
  - TYPE IV HYPERSENSITIVITY REACTION [None]
